FAERS Safety Report 4365127-1 (Version None)
Quarter: 2004Q2

REPORT INFORMATION
  Report Type: 
  Country: None (occurrence: None)
  Receive Date: 20040521
  Receipt Date: 20040506
  Transmission Date: 20050107
  Serious: Yes (Other)
  Sender: FDA-Public Use
  Company Number: L04-TUR-02016-01

PATIENT
  Age: 27 Year
  Sex: Female

DRUGS (2)
  1. INDOMETHACIN [Suspect]
     Indication: RHEUMATOID ARTHRITIS
     Dosage: 150 MG QD PO
     Route: 048
  2. BETAMETHASONE [Concomitant]

REACTIONS (5)
  - AMNIOCENTESIS ABNORMAL [None]
  - DRUG EXPOSURE DURING PREGNANCY [None]
  - LABORATORY TEST ABNORMAL [None]
  - OLIGOHYDRAMNIOS [None]
  - PREMATURE RUPTURE OF MEMBRANES [None]
